FAERS Safety Report 14055597 (Version 1)
Quarter: 2017Q4

REPORT INFORMATION
  Report Type: Spontaneous
  Country: US (occurrence: US)
  Receive Date: 20171006
  Receipt Date: 20171006
  Transmission Date: 20180321
  Serious: Yes (Other)
  Sender: FDA-Public Use
  Company Number: US-009507513-1710USA000705

PATIENT
  Sex: Female

DRUGS (1)
  1. NEXPLANON [Suspect]
     Active Substance: ETONOGESTREL
     Indication: CONTRACEPTION
     Dosage: UNK DF, UNK
     Route: 059

REACTIONS (4)
  - Headache [Unknown]
  - Ovarian cyst [Unknown]
  - Drug ineffective [Unknown]
  - Menorrhagia [Unknown]
